FAERS Safety Report 5007375-3 (Version None)
Quarter: 2006Q2

REPORT INFORMATION
  Report Type: 
  Country: None (occurrence: None)
  Receive Date: 20060518
  Receipt Date: 20060518
  Transmission Date: 20061013
  Serious: Yes (Other)
  Sender: FDA-Public Use
  Company Number: None

PATIENT
  Age: 76 Year
  Sex: Female
  Weight: 84.8226 kg

DRUGS (11)
  1. ORENCIA [Suspect]
     Indication: RHEUMATOID ARTHRITIS
     Dosage: 1000MG Q2WK X 3DOSES  IV DRIP
     Route: 041
     Dates: start: 20060413, end: 20060515
  2. FORTEO [Concomitant]
  3. PREDNISONE [Concomitant]
  4. GLIMEPIRIDE [Concomitant]
  5. TRAMADOL HCL [Concomitant]
  6. CYCLOBENZAPRINE HCL [Concomitant]
  7. OMEPRAZOLE [Concomitant]
  8. FOLIC ACID [Concomitant]
  9. METHOTREXATE [Concomitant]
  10. PLAQUENIL [Concomitant]
  11. HYDROCODONE [Concomitant]

REACTIONS (1)
  - ERYTHEMA NODOSUM [None]
